FAERS Safety Report 16944155 (Version 1)
Quarter: 2019Q4

REPORT INFORMATION
  Report Type: Other
  Country: GB (occurrence: GB)
  Receive Date: 20191022
  Receipt Date: 20191022
  Transmission Date: 20200122
  Serious: Yes (Other)
  Sender: FDA-Public Use
  Company Number: GB-EMCURE PHARMACEUTICALS LTD-2019-EPL-0954

PATIENT
  Age: 58 Year
  Sex: Male
  Weight: 76 kg

DRUGS (12)
  1. CICLESONIDE [Concomitant]
     Active Substance: CICLESONIDE
     Dosage: 4 DOSAGE FORM DAILY
     Route: 055
     Dates: start: 20190211
  2. SERETIDE [Concomitant]
     Active Substance: FLUTICASONE PROPIONATE\SALMETEROL XINAFOATE
     Dosage: 2 DOSAGE FORM DAILY
     Route: 055
     Dates: start: 20190211
  3. FLUTICASONE FUROATE [Concomitant]
     Active Substance: FLUTICASONE FUROATE
     Dosage: 4 DOSAGE FORM, IN EACH NOSTRIL DAILY, OR AS DIRECTED
     Route: 045
     Dates: start: 20190211
  4. VENTOLIN [Concomitant]
     Active Substance: ALBUTEROL SULFATE
     Dosage: 2 DOSAGE FORM, AS NECESSARY
     Route: 055
     Dates: start: 20190211
  5. MONTELUKAST [Concomitant]
     Active Substance: MONTELUKAST SODIUM
     Dosage: 1 DOSAGE FORM DAILY AT NIGHT
     Dates: start: 20190211
  6. FERROUS SULFATE. [Concomitant]
     Active Substance: FERROUS SULFATE
     Dosage: 3 DOSAGE FORM DAILY
     Dates: start: 20190710
  7. CETIRIZINE [Concomitant]
     Active Substance: CETIRIZINE HYDROCHLORIDE
     Dosage: 1 DOSAGE FORM DAILY
     Dates: start: 20190710
  8. SULFAMETHOXAZOLE, TRIMETHOPRIM [Suspect]
     Active Substance: SULFAMETHOXAZOLE\TRIMETHOPRIM
     Indication: PRODUCT USED FOR UNKNOWN INDICATION
     Dosage: 80 MG/400 MG
     Dates: start: 20190823
  9. CITALOPRAM [Concomitant]
     Active Substance: CITALOPRAM HYDROBROMIDE
     Dosage: 1 DOSAGE FORM
     Dates: start: 20190211
  10. SPIRIVA [Concomitant]
     Active Substance: TIOTROPIUM BROMIDE MONOHYDRATE
     Dosage: 1 DOSAGE FORM DAILY
     Route: 055
     Dates: start: 20190211
  11. NYSTAN [Concomitant]
     Active Substance: NYSTATIN
     Dosage: 4 MILLILITER/DAY
     Dates: start: 20190717, end: 20190724
  12. FERROUS FUMARATE [Concomitant]
     Active Substance: FERROUS FUMARATE
     Dosage: 10 MILLILITER, ONCE OR TWICE A DAY
     Dates: start: 20190717, end: 20190806

REACTIONS (1)
  - Drug reaction with eosinophilia and systemic symptoms [Recovering/Resolving]

NARRATIVE: CASE EVENT DATE: 20190823
